FAERS Safety Report 4717729-8 (Version None)
Quarter: 2005Q3

REPORT INFORMATION
  Report Type: 
  Country: None (occurrence: None)
  Receive Date: 20050713
  Receipt Date: 20050524
  Transmission Date: 20060218
  Serious: Yes (Other)
  Sender: FDA-Public Use
  Company Number: HQWYE021631MAY05

PATIENT
  Age: 72 Year
  Sex: Female
  Weight: 72.19 kg

DRUGS (5)
  1. ALAVERT [Suspect]
     Indication: HYPERSENSITIVITY
     Dosage: 1 TABLET 1X PER 1 DAY, ORAL
     Route: 048
     Dates: start: 20050523, end: 20050523
  2. METFORMIN HCL [Concomitant]
  3. AVANDIA [Concomitant]
  4. UNKNOWN (UNKNOWN) [Concomitant]
  5. LISINOPRIL [Concomitant]

REACTIONS (3)
  - DIZZINESS [None]
  - HALLUCINATION [None]
  - HYPERHIDROSIS [None]
